FAERS Safety Report 18361006 (Version 2)
Quarter: 2020Q4

REPORT INFORMATION
  Report Type: Report from Study
  Country: JP (occurrence: JP)
  Receive Date: 20201008
  Receipt Date: 20201023
  Transmission Date: 20210114
  Serious: Yes (Hospitalization)
  Sender: FDA-Public Use
  Company Number: JP-PFIZER INC-2020384947

PATIENT
  Age: 1 Year
  Sex: Female
  Weight: 9.35 kg

DRUGS (8)
  1. SIROLIMUS. [Suspect]
     Active Substance: SIROLIMUS
     Dosage: 0.7 MG, 1X/DAY (ONE-DIVIDED DOSE AFTER BREAKFAST)
     Route: 048
     Dates: start: 20200311, end: 20200326
  2. MUCODYNE [Concomitant]
     Active Substance: CARBOCYSTEINE
     Dosage: 270 MG, 2X/DAY
     Route: 048
  3. PULMICORT TURBUHALER [Concomitant]
     Active Substance: BUDESONIDE
     Dosage: UNK, 1X/DAY
     Route: 055
  4. SIROLIMUS. [Suspect]
     Active Substance: SIROLIMUS
     Indication: LYMPHANGIOMA
     Dosage: 0.7 MG, 1X/DAY (ONE-DIVIDED DOSE AFTER BREAKFAST)
     Route: 048
     Dates: start: 20191023, end: 20200202
  5. SIROLIMUS. [Suspect]
     Active Substance: SIROLIMUS
     Dosage: 0.9 MG, 1X/DAY (ONE-DIVIDED DOSE AFTER BREAKFAST)
     Route: 048
     Dates: start: 20200203, end: 20200226
  6. ONON [Concomitant]
     Active Substance: PRANLUKAST
     Dosage: 63 MG, 2X/DAY
     Route: 048
  7. BIOFERMIN [LACTOMIN] [Concomitant]
     Active Substance: DIETARY SUPPLEMENT\PROBIOTICS
     Dosage: 0.8 G, 3X/DAY
     Route: 048
  8. DAIPHEN [Concomitant]
     Active Substance: SULFAMETHOXAZOLE\TRIMETHOPRIM
     Indication: INFECTION PROPHYLAXIS
     Dosage: 0.8 G, 2X/DAY
     Route: 048
     Dates: start: 20191218

REACTIONS (2)
  - Gastroenteritis [Recovered/Resolved]
  - Pneumonia [Recovered/Resolved]

NARRATIVE: CASE EVENT DATE: 20200224
